FAERS Safety Report 9385313 (Version 3)
Quarter: 2014Q2

REPORT INFORMATION
  Report Type: Spontaneous
  Country: US (occurrence: US)
  Receive Date: 20130705
  Receipt Date: 20140513
  Transmission Date: 20141212
  Serious: Yes (Death, Hospitalization)
  Sender: FDA-Public Use
  Company Number: US-GLAXOSMITHKLINE-A1029778A

PATIENT
  Age: 50 Year
  Sex: Female
  Weight: 92.3 kg

DRUGS (3)
  1. AVANDIA [Suspect]
     Indication: DIABETES MELLITUS
     Dosage: 8MG PER DAY
     Route: 048
     Dates: start: 20020708, end: 20040617
  2. AVANDARYL [Suspect]
     Indication: DIABETES MELLITUS
     Route: 048
     Dates: start: 20060206, end: 20061208
  3. AVANDAMET [Suspect]
     Indication: DIABETES MELLITUS
     Route: 048

REACTIONS (6)
  - Sepsis [Fatal]
  - Cardiac arrest [Unknown]
  - Cardiac failure congestive [Unknown]
  - Coronary artery disease [Unknown]
  - Angina unstable [Unknown]
  - Atrial fibrillation [Unknown]
